FAERS Safety Report 14908931 (Version 3)
Quarter: 2018Q2

REPORT INFORMATION
  Report Type: Spontaneous
  Country: US (occurrence: US)
  Receive Date: 20180517
  Receipt Date: 20180627
  Transmission Date: 20180711
  Serious: Yes (Other)
  Sender: FDA-Public Use
  Company Number: PHEH2018US018506

PATIENT
  Age: 68 Year
  Sex: Male
  Weight: 140 kg

DRUGS (9)
  1. ENTRESTO [Suspect]
     Active Substance: SACUBITRIL\VALSARTAN
     Indication: CARDIAC FAILURE CHRONIC
     Dosage: UNK
     Route: 065
  2. EPLERENONE. [Concomitant]
     Active Substance: EPLERENONE
     Indication: BLOOD POTASSIUM INCREASED
     Dosage: UNK
     Route: 048
  3. HSA [Concomitant]
     Indication: THROMBOSIS
     Dosage: UNK
     Route: 048
  4. DIGOXIN. [Concomitant]
     Active Substance: DIGOXIN
     Indication: CARDIAC FAILURE CONGESTIVE
     Dosage: UNK
     Route: 048
  5. TRENTAL [Concomitant]
     Active Substance: PENTOXIFYLLINE
     Indication: SYSTEMIC INFLAMMATORY RESPONSE SYNDROME
     Dosage: UNK
     Route: 048
  6. ENTRESTO [Suspect]
     Active Substance: SACUBITRIL\VALSARTAN
     Dosage: 0.5 DF, BID
     Route: 065
  7. LASIX [Concomitant]
     Active Substance: FUROSEMIDE
     Indication: OEDEMA
     Dosage: UNK
     Route: 065
  8. PEPCID [Concomitant]
     Active Substance: FAMOTIDINE
     Indication: INFLAMMATION
     Dosage: UNK
     Route: 048
  9. ALLOPURINOL. [Concomitant]
     Active Substance: ALLOPURINOL
     Indication: PRODUCT USED FOR UNKNOWN INDICATION
     Dosage: UNK
     Route: 048

REACTIONS (7)
  - Hyperkalaemia [Unknown]
  - Blood pressure decreased [Unknown]
  - Wrong technique in product usage process [Unknown]
  - Syncope [Recovered/Resolved]
  - Syncope [Recovered/Resolved]
  - Drug intolerance [Unknown]
  - Syncope [Recovered/Resolved]

NARRATIVE: CASE EVENT DATE: 20180427
